FAERS Safety Report 14946779 (Version 6)
Quarter: 2018Q3

REPORT INFORMATION
  Report Type: Report from Study
  Country: TW (occurrence: TW)
  Receive Date: 20180529
  Receipt Date: 20180720
  Transmission Date: 20181010
  Serious: Yes (Life-Threatening, Hospitalization)
  Sender: FDA-Public Use
  Company Number: TW-EISAI MEDICAL RESEARCH-EC-2018-039977

PATIENT
  Age: 56 Year
  Sex: Male
  Weight: 81.3 kg

DRUGS (5)
  1. MORPHINE HCL [Concomitant]
     Active Substance: MORPHINE HYDROCHLORIDE
  2. SODIUM CHLORIDE. [Concomitant]
     Active Substance: SODIUM CHLORIDE
  3. EVEROLIMUS. [Suspect]
     Active Substance: EVEROLIMUS
     Indication: RENAL CELL CARCINOMA
     Route: 048
     Dates: start: 20180419, end: 20180515
  4. LENVATINIB [Suspect]
     Active Substance: LENVATINIB
     Indication: RENAL CELL CARCINOMA
     Dosage: 18 MG OR 14 MG
     Route: 048
     Dates: start: 20180419, end: 20180515
  5. FENTANYL CITRATE. [Concomitant]
     Active Substance: FENTANYL CITRATE

REACTIONS (4)
  - Septic shock [Recovered/Resolved]
  - Malignant neoplasm progression [Not Recovered/Not Resolved]
  - Acute kidney injury [Recovered/Resolved]
  - Febrile neutropenia [Recovered/Resolved]

NARRATIVE: CASE EVENT DATE: 20180516
